FAERS Safety Report 9107512 (Version 2)
Quarter: 2013Q1

REPORT INFORMATION
  Report Type: Spontaneous
  Country: US (occurrence: US)
  Receive Date: 20130221
  Receipt Date: 20130308
  Transmission Date: 20140127
  Serious: Yes (Hospitalization)
  Sender: FDA-Public Use
  Company Number: US-GILEAD-2012-0061882

PATIENT
  Sex: Male

DRUGS (13)
  1. LETAIRIS [Suspect]
     Indication: PULMONARY ARTERIAL HYPERTENSION
     Dosage: 5 MG, QD
     Route: 048
     Dates: start: 20120908
  2. LETAIRIS [Suspect]
     Indication: CARDIAC FAILURE CONGESTIVE
  3. LETAIRIS [Suspect]
     Indication: SLEEP APNOEA SYNDROME
  4. LASIX                              /00032601/ [Concomitant]
  5. AMLODIPINE BESYLATE [Concomitant]
  6. GLIPIZIDE [Concomitant]
  7. LANTUS SOLOSTAR [Concomitant]
  8. EFFIENT [Concomitant]
  9. ASPIRIN CHILDREN [Concomitant]
  10. INSULIN GLARGINE [Concomitant]
  11. ENALAPRIL MALEATE [Concomitant]
  12. LUPRON DEPOT [Concomitant]
  13. COREG [Concomitant]

REACTIONS (3)
  - Dyspnoea [Unknown]
  - Fluid overload [Unknown]
  - Dyspnoea [Unknown]
